FAERS Safety Report 8819041 (Version 1)
Quarter: 2012Q4

REPORT INFORMATION
  Report Type: 
  Country: DE (occurrence: DE)
  Receive Date: 20121001
  Receipt Date: 20121001
  Transmission Date: 20130627
  Serious: Yes (Hospitalization, Other)
  Sender: FDA-Public Use
  Company Number: DE-JNJFOC-20120911592

PATIENT
  Age: 29 Year
  Sex: Male

DRUGS (9)
  1. REMICADE [Suspect]
     Indication: CROHN^S DISEASE
     Route: 042
     Dates: start: 20120530
  2. REMICADE [Suspect]
     Indication: CROHN^S DISEASE
     Route: 042
     Dates: start: 20120430
  3. REMICADE [Suspect]
     Indication: CROHN^S DISEASE
     Route: 042
     Dates: start: 20120416
  4. PREDNISOLONE [Suspect]
     Indication: CROHN^S DISEASE
     Dosage: dose tapered to 0 mg; stop also reported as 18-MAY-2012
     Route: 048
     Dates: start: 20120314, end: 20120525
  5. PANTOZOL [Concomitant]
     Route: 065
  6. ZYPREXA [Concomitant]
     Indication: SCHIZOPHRENIA, PARANOID TYPE
     Route: 065
  7. MIRTAZAPIN [Concomitant]
     Route: 065
  8. CITALOPRAM [Concomitant]
     Indication: SCHIZOPHRENIA, PARANOID TYPE
     Route: 065
  9. SALOFALK [Concomitant]
     Indication: CROHN^S DISEASE
     Route: 065
     Dates: start: 2011, end: 20120530

REACTIONS (1)
  - Schizophrenia, paranoid type [Unknown]
